FAERS Safety Report 15234647 (Version 1)
Quarter: 2018Q3

REPORT INFORMATION
  Report Type: Report from Study
  Country: DE (occurrence: DE)
  Receive Date: 20180803
  Receipt Date: 20180803
  Transmission Date: 20181010
  Serious: Yes (Hospitalization)
  Sender: FDA-Public Use
  Company Number: DE-ALXN-A201805577AA

PATIENT
  Age: 12 Year
  Weight: 49.6 kg

DRUGS (25)
  1. RENVELA [Concomitant]
     Active Substance: SEVELAMER CARBONATE
     Indication: HYPERPHOSPHATAEMIA
     Dosage: 600 MG, UNK
     Route: 048
     Dates: start: 20130501, end: 20150928
  2. RENVELA [Concomitant]
     Active Substance: SEVELAMER CARBONATE
     Indication: PROPHYLAXIS
     Dosage: 2.4 G, UNK
     Route: 048
     Dates: start: 20150928, end: 20160610
  3. SAIZEN [Concomitant]
     Active Substance: SOMATROPIN
     Indication: CHRONIC KIDNEY DISEASE-MINERAL AND BONE DISORDER
     Dosage: 1.75 MG, UNK
     Route: 058
     Dates: start: 20150928, end: 20161115
  4. EINSALPHA [Concomitant]
     Indication: HYPERPARATHYROIDISM
     Dosage: 20?0?0 DROPS MON/WED/FRI
     Route: 065
  5. VIGANTOLETTEN [Concomitant]
     Active Substance: CHOLECALCIFEROL
     Indication: PRODUCT USED FOR UNKNOWN INDICATION
     Dosage: 1000 IU, QD
     Route: 065
  6. BIOCARN [Concomitant]
     Dosage: 300 MG, UNK
     Route: 048
     Dates: start: 20120601
  7. EINSALPHA [Concomitant]
     Dosage: 2 ?G/ML, UNK
     Route: 048
     Dates: start: 20141128
  8. AMPHO?MORONAL [Concomitant]
     Active Substance: AMPHOTERICIN B
     Indication: PROPHYLAXIS
     Dosage: 4 X 2ML, UNK
     Route: 065
     Dates: start: 20170505, end: 20170528
  9. ECULIZUMAB [Suspect]
     Active Substance: ECULIZUMAB
     Dosage: 600 MG, Q2W
     Route: 065
     Dates: start: 20140320
  10. MIRCERA [Concomitant]
     Active Substance: METHOXY POLYETHYLENE GLYCOL-EPOETIN BETA
     Indication: NEPHROGENIC ANAEMIA
     Dosage: 200 ?G, Q2W
     Route: 042
     Dates: start: 20150515
  11. CELLCEPT [Concomitant]
     Active Substance: MYCOPHENOLATE MOFETIL\MYCOPHENOLATE MOFETIL HYDROCHLORIDE
     Indication: PRODUCT USED FOR UNKNOWN INDICATION
     Dosage: UNK
     Route: 065
  12. EINSALPHA [Concomitant]
     Indication: PROPHYLAXIS
     Dosage: 2 ?G, UNK
     Route: 048
     Dates: start: 20130101, end: 20130807
  13. VITARENAL [Concomitant]
     Indication: PROPHYLAXIS
     Dosage: 1?0?0 CAPSULES EVERY 4 DAYS
     Route: 065
  14. ECULIZUMAB [Suspect]
     Active Substance: ECULIZUMAB
     Indication: ATYPICAL HAEMOLYTIC URAEMIC SYNDROME
     Dosage: 600 MG, Q2W
     Route: 065
     Dates: start: 20120504, end: 20120727
  15. ECULIZUMAB [Suspect]
     Active Substance: ECULIZUMAB
     Dosage: 600 MG, Q2W
     Route: 042
     Dates: start: 20170428
  16. RENVELA [Concomitant]
     Active Substance: SEVELAMER CARBONATE
     Dosage: 2.4 G, UNK
     Route: 048
     Dates: start: 20161220
  17. SAIZEN [Concomitant]
     Active Substance: SOMATROPIN
     Dosage: 1.9 MG, UNK
     Route: 058
     Dates: start: 20161116
  18. PRONTOSAN                          /01610101/ [Concomitant]
     Indication: PRODUCT USED FOR UNKNOWN INDICATION
     Dosage: UNK, BID
     Route: 065
  19. MODIGRAF [Concomitant]
     Active Substance: TACROLIMUS
     Indication: PRODUCT USED FOR UNKNOWN INDICATION
     Dosage: UNK
     Route: 065
  20. RENVELA [Concomitant]
     Active Substance: SEVELAMER CARBONATE
     Dosage: 2.4 G, UNK
     Route: 048
     Dates: start: 20160120, end: 20160415
  21. VITARENAL [Concomitant]
     Dosage: UNK
     Route: 048
     Dates: start: 20150626
  22. NEPRO                              /07459601/ [Concomitant]
     Indication: SUPPLEMENTATION THERAPY
     Dosage: UNK
     Route: 048
  23. EINSALPHA [Concomitant]
     Indication: CHRONIC KIDNEY DISEASE-MINERAL AND BONE DISORDER
     Dosage: 0.5 ?G, UNK
     Route: 048
     Dates: start: 20130808, end: 20141128
  24. BIOCARN [Concomitant]
     Indication: PROPHYLAXIS
     Dosage: 1 G/3.3 ML, 10 DROPS EVERY 4 DAYS
     Route: 065
  25. SAIZEN [Concomitant]
     Active Substance: SOMATROPIN
     Indication: GROWTH RETARDATION
     Dosage: 1.2 MG, UNK
     Route: 058
     Dates: start: 20121101, end: 20150928

REACTIONS (1)
  - Peritonitis bacterial [Recovered/Resolved]

NARRATIVE: CASE EVENT DATE: 20170504
